FAERS Safety Report 7021278-4 (Version None)
Quarter: 2010Q3

REPORT INFORMATION
  Report Type: 
  Country: None (occurrence: None)
  Receive Date: 20100927
  Receipt Date: 20100903
  Transmission Date: 20110219
  Serious: Yes (Hospitalization, Other)
  Sender: FDA-Public Use
  Company Number: DSA_33117_2009

PATIENT
  Age: 80 Year
  Sex: Female

DRUGS (3)
  1. HERBESSER (HERBESSER - DILTIAZEM) (NOT SPECIFIED) [Suspect]
     Indication: PRODUCT USED FOR UNKNOWN INDICATION
     Dosage: (DF)
  2. ASPIRIN [Suspect]
     Indication: PRODUCT USED FOR UNKNOWN INDICATION
     Dosage: (DF)
  3. NICORANDIL (NICORANDIL) [Suspect]
     Indication: PRODUCT USED FOR UNKNOWN INDICATION
     Dosage: (DF)

REACTIONS (4)
  - CAPILLARY FRAGILITY INCREASED [None]
  - DRUG INTERACTION [None]
  - PETECHIAE [None]
  - PURPURA [None]
